FAERS Safety Report 13832945 (Version 3)
Quarter: 2017Q4

REPORT INFORMATION
  Report Type: Spontaneous
  Country: GB (occurrence: GB)
  Receive Date: 20170803
  Receipt Date: 20171010
  Transmission Date: 20180320
  Serious: Yes (Other)
  Sender: FDA-Public Use
  Company Number: GB-ABBVIE-17P-167-2053500-00

PATIENT
  Age: 24 Year
  Sex: Female
  Weight: 87.8 kg

DRUGS (4)
  1. LEUPRORELIN ACETATE [Suspect]
     Active Substance: LEUPROLIDE ACETATE
     Indication: MENORRHAGIA
     Dosage: 3.6 MG, UNK
     Route: 065
     Dates: start: 20150908
  2. LEUPRORELIN ACETATE [Suspect]
     Active Substance: LEUPROLIDE ACETATE
     Indication: PRODUCT USED FOR UNKNOWN INDICATION
     Dosage: 11.25 MG, UNK
     Route: 065
     Dates: start: 20170511
  3. TIBOLONE [Concomitant]
     Active Substance: TIBOLONE
     Indication: PRODUCT USED FOR UNKNOWN INDICATION
     Dosage: 2.5 MG, UNK
  4. LEUPRORELIN ACETATE [Concomitant]
     Active Substance: LEUPROLIDE ACETATE
     Indication: PRODUCT USED FOR UNKNOWN INDICATION
     Dosage: UNK
     Dates: end: 20170810

REACTIONS (10)
  - Hepatic enzyme abnormal [Unknown]
  - Alanine aminotransferase increased [Recovered/Resolved]
  - Off label use [Unknown]
  - Hepatic steatosis [Unknown]
  - Facial paralysis [Recovered/Resolved]
  - Product use in unapproved indication [Unknown]
  - Dysarthria [Unknown]
  - Facial paresis [Unknown]
  - Hypoaesthesia [Unknown]
  - Peripheral swelling [Recovered/Resolved]

NARRATIVE: CASE EVENT DATE: 20170616
